FAERS Safety Report 9423113 (Version 2)
Quarter: 2013Q3

REPORT INFORMATION
  Report Type: Spontaneous
  Country: DE (occurrence: DE)
  Receive Date: 20130726
  Receipt Date: 20130815
  Transmission Date: 20140515
  Serious: No
  Sender: FDA-Public Use
  Company Number: DE-UCBSA-090930

PATIENT
  Age: 22 Year
  Sex: Female
  Weight: 62 kg

DRUGS (4)
  1. KEPPRA [Suspect]
     Indication: PETIT MAL EPILEPSY
     Route: 048
     Dates: start: 20130619, end: 201306
  2. LEVINA STADA [Interacting]
     Indication: ORAL CONTRACEPTION
     Dosage: DAILY DOSE: 30/150 ?G
     Route: 048
     Dates: start: 20130222, end: 2013
  3. LEVINA STADA [Interacting]
     Indication: ORAL CONTRACEPTION
     Dosage: DAILY DOSE: 30/150 ?G
     Route: 048
     Dates: start: 2013
  4. LAMOTRIGINE [Concomitant]
     Indication: EPILEPSY
     Dosage: DOSE: 200/30 MG, 2 PER DAY
     Route: 048
     Dates: start: 20060901

REACTIONS (3)
  - Metrorrhagia [Recovered/Resolved]
  - Drug interaction [Recovered/Resolved]
  - Inappropriate schedule of drug administration [Unknown]
